FAERS Safety Report 6308451-5 (Version None)
Quarter: 2009Q3

REPORT INFORMATION
  Report Type: 
  Country: None (occurrence: None)
  Receive Date: 20090813
  Receipt Date: 20090805
  Transmission Date: 20100115
  Serious: Yes (Hospitalization, Disabling, Other)
  Sender: FDA-Public Use
  Company Number: PHHY2009JP22238

PATIENT
  Age: 72 Year
  Sex: Male
  Weight: 64 kg

DRUGS (14)
  1. DIOVAN [Suspect]
     Indication: HYPERTENSION
     Dosage: 160 MG DAILY
     Route: 048
     Dates: start: 20080611, end: 20090403
  2. DIOVAN [Suspect]
     Dosage: 80 MG DAILY
     Route: 048
     Dates: start: 20090423, end: 20090515
  3. DIOVAN [Suspect]
     Dosage: 160 MG DAILY
     Route: 048
     Dates: start: 20090516
  4. NU-LOTAN [Concomitant]
     Indication: HYPERTENSION
     Dosage: 50 MG
     Route: 048
     Dates: start: 20080402, end: 20080610
  5. HERBESSOR R [Concomitant]
     Indication: HYPERTENSION
     Dosage: 200 MG
     Route: 048
     Dates: start: 20080402, end: 20080819
  6. ADALAT CC [Concomitant]
     Indication: HYPERTENSION
     Dosage: 20 MG
     Route: 048
     Dates: start: 20080820
  7. ADALAT CC [Concomitant]
     Dosage: 40 MG
     Route: 048
     Dates: end: 20090403
  8. ZYLORIC ^FRESENIUS^ [Concomitant]
     Dosage: 100 MG
     Route: 048
     Dates: start: 20080402
  9. NITOROL [Concomitant]
     Dosage: 40 MG
     Route: 048
     Dates: start: 20080402
  10. BUFFERIN [Concomitant]
     Dosage: 81 MG
     Route: 048
     Dates: start: 20080402, end: 20090403
  11. PANALDINE [Concomitant]
     Dosage: 200 MG
     Route: 048
     Dates: start: 20080402
  12. NITROPEN [Concomitant]
     Dosage: 0.3 MG, PRN
     Route: 060
     Dates: start: 20080402
  13. WARFARIN SODIUM [Concomitant]
     Dosage: UNK
     Route: 048
     Dates: start: 20090411
  14. ASPIRIN [Concomitant]
     Dosage: 100 MG
     Route: 048
     Dates: start: 20090409

REACTIONS (3)
  - ATRIAL FIBRILLATION [None]
  - CEREBRAL INFARCTION [None]
  - PARESIS [None]
